FAERS Safety Report 16427546 (Version 1)
Quarter: 2019Q2

REPORT INFORMATION
  Report Type: Spontaneous
  Country: TR (occurrence: TR)
  Receive Date: 20190613
  Receipt Date: 20190613
  Transmission Date: 20190711
  Serious: Yes (Hospitalization)
  Sender: FDA-Public Use
  Company Number: TR-JNJFOC-20190615417

PATIENT
  Age: 61 Year
  Sex: Female
  Weight: 90 kg

DRUGS (1)
  1. DURAGESIC [Suspect]
     Active Substance: FENTANYL
     Indication: PAIN
     Route: 062

REACTIONS (4)
  - Loss of consciousness [Unknown]
  - Toxicity to various agents [Unknown]
  - Drug diversion [Unknown]
  - Dyspnoea [Unknown]
